FAERS Safety Report 9789755 (Version 1)
Quarter: 2013Q4

REPORT INFORMATION
  Report Type: Spontaneous
  Country: US (occurrence: None)
  Receive Date: 20131223
  Receipt Date: 20131223
  Transmission Date: 20140711
  Serious: Yes (Hospitalization)
  Sender: FDA-Public Use
  Company Number: EUS-2012-00097

PATIENT
  Age: 16 Year
  Sex: Male

DRUGS (1)
  1. ASPARAGINASE (UNSPECIFIED)(ASPARAGINASE) [Suspect]
     Indication: ACUTE LYMPHOCYTIC LEUKAEMIA

REACTIONS (3)
  - Pancreatitis [None]
  - Hyperammonaemic encephalopathy [None]
  - Amino acid level increased [None]
